FAERS Safety Report 15333751 (Version 2)
Quarter: 2021Q2

REPORT INFORMATION
  Report Type: Spontaneous
  Country: US (occurrence: US)
  Receive Date: 20180830
  Receipt Date: 20210613
  Transmission Date: 20210716
  Serious: Yes (Other)
  Sender: FDA-Public Use
  Company Number: US-SA-2018SA238004

PATIENT
  Sex: Female

DRUGS (2)
  1. TAXOTERE [Suspect]
     Active Substance: DOCETAXEL
     Dosage: UNKNOWN
     Route: 042
     Dates: start: 201609, end: 201609
  2. TAXOTERE [Suspect]
     Active Substance: DOCETAXEL
     Dosage: UNKNOWN
     Route: 042
     Dates: start: 201605, end: 201605

REACTIONS (1)
  - Alopecia [Not Recovered/Not Resolved]
